FAERS Safety Report 15620164 (Version 2)
Quarter: 2019Q2

REPORT INFORMATION
  Report Type: Spontaneous
  Country: US (occurrence: US)
  Receive Date: 20181115
  Receipt Date: 20190530
  Transmission Date: 20190711
  Serious: Yes (Other)
  Sender: FDA-Public Use
  Company Number: US-SUN PHARMACEUTICAL INDUSTRIES LTD-2018US-191079

PATIENT
  Age: 48 Year
  Sex: Female

DRUGS (4)
  1. RITUXIMAB. [Suspect]
     Active Substance: RITUXIMAB
     Indication: ULCERATIVE KERATITIS
     Dosage: 1000 MILLIGRAM
     Route: 042
  2. PREDNISONE. [Suspect]
     Active Substance: PREDNISONE
     Indication: ULCERATIVE KERATITIS
     Dosage: 60 MILLIGRAM
     Route: 048
  3. MYCOPHENOLATE MOFETIL. [Suspect]
     Active Substance: MYCOPHENOLATE MOFETIL
     Indication: ULCERATIVE KERATITIS
     Dosage: UNK, ON DISCHARGED
     Route: 065
  4. METHYLPREDNISOLONE SODIUM SUCCINATE. [Suspect]
     Active Substance: METHYLPREDNISOLONE SODIUM SUCCINATE
     Indication: ULCERATIVE KERATITIS
     Dosage: 1 GRAM, DAILY FOR THREE DAYS
     Route: 042

REACTIONS (2)
  - Corneal perforation [Recovered/Resolved]
  - Iridocele [Recovered/Resolved]
